FAERS Safety Report 10067307 (Version 1)
Quarter: 2014Q2

REPORT INFORMATION
  Report Type: Spontaneous
  Country: US (occurrence: None)
  Receive Date: 20140408
  Receipt Date: 20140408
  Transmission Date: 20141212
  Serious: Yes (Other)
  Sender: FDA-Public Use
  Company Number: None

PATIENT
  Age: 54 Year
  Sex: Male
  Weight: 90.72 kg

DRUGS (2)
  1. FENTANYL PATCH 25 MCG/HR (NO PREF. NAME) [Suspect]
     Indication: FACET JOINT SYNDROME
     Dosage: 25MCG, EVERY 72 HRS/ TRANSDERMAL
     Route: 062
     Dates: start: 20140221
  2. FENTANYL PATCH 25 MCG/HR (NO PREF. NAME) [Suspect]
     Indication: LIGAMENT SPRAIN
     Dosage: 25MCG, EVERY 72 HRS/ TRANSDERMAL
     Route: 062
     Dates: start: 20140221

REACTIONS (1)
  - Respiratory disorder [None]
